FAERS Safety Report 4687779-9 (Version None)
Quarter: 2005Q2

REPORT INFORMATION
  Report Type: 
  Country: None (occurrence: None)
  Receive Date: 20050609
  Receipt Date: 20050609
  Transmission Date: 20051028
  Serious: Yes (Other)
  Sender: FDA-Public Use
  Company Number: None

PATIENT
  Sex: Male
  Weight: 117 kg

DRUGS (6)
  1. ALLOGENEIC TRANSPLANT TISSUE [Suspect]
     Indication: MULTIPLE MYELOMA
     Dates: start: 20050119
  2. ALLOGENEIC TRANSPLANT TISSUE [Suspect]
     Indication: MULTIPLE MYELOMA
     Dates: start: 20050503
  3. CYCLOPHOSPHAMIDE [Concomitant]
  4. FLUDARABINE PHOSPHATE [Concomitant]
  5. G-CSF [Concomitant]
  6. METHOTREXATE [Concomitant]

REACTIONS (9)
  - ALANINE AMINOTRANSFERASE INCREASED [None]
  - ASPARTATE AMINOTRANSFERASE INCREASED [None]
  - BLOOD ALKALINE PHOSPHATASE INCREASED [None]
  - BLOOD CREATINE INCREASED [None]
  - CATHETER RELATED INFECTION [None]
  - HYPERGLYCAEMIA [None]
  - HYPERKALAEMIA [None]
  - PAIN IN EXTREMITY [None]
  - PYREXIA [None]
